FAERS Safety Report 4626575-5 (Version None)
Quarter: 2005Q1

REPORT INFORMATION
  Report Type: 
  Country: None (occurrence: None)
  Receive Date: 20050330
  Receipt Date: 20050314
  Transmission Date: 20050727
  Serious: Yes (Life-Threatening, Hospitalization)
  Sender: FDA-Public Use
  Company Number: USA050392524

PATIENT
  Age: 55 Year
  Sex: Female
  Weight: 68 kg

DRUGS (2)
  1. GEMZAR [Suspect]
     Indication: METASTASES TO LUNG
     Dosage: 1000 MG/M2
  2. CARBOPLATIN [Concomitant]

REACTIONS (10)
  - BLOOD LACTATE DEHYDROGENASE INCREASED [None]
  - CONDITION AGGRAVATED [None]
  - DYSPNOEA [None]
  - HYPOXIA [None]
  - INFECTION [None]
  - INFLAMMATION [None]
  - LUNG INFILTRATION [None]
  - RESPIRATORY DISTRESS [None]
  - URTICARIA [None]
  - WHEEZING [None]
